FAERS Safety Report 9867865 (Version 2)
Quarter: 2014Q1

REPORT INFORMATION
  Report Type: Spontaneous
  Country: US (occurrence: US)
  Receive Date: 20140204
  Receipt Date: 20140204
  Transmission Date: 20141002
  Serious: Yes (Hospitalization, Other)
  Sender: FDA-Public Use
  Company Number: PHHY2013US033226

PATIENT
  Sex: Male

DRUGS (15)
  1. CARBAMAZEPINE [Suspect]
     Dosage: UNK UKN, UNK
  2. BACLOFEN INTRATHECAL [Suspect]
     Indication: MUSCLE SPASTICITY
     Dosage: UNK UKN, UNK
     Route: 037
     Dates: start: 20050711
  3. BACLOFEN INTRATHECAL [Suspect]
     Dosage: 575.7 UG, DAY
     Route: 037
  4. BACLOFEN INTRATHECAL [Suspect]
     Dosage: 810 UG, UNK
     Route: 037
  5. BACLOFEN INTRATHECAL [Suspect]
     Dosage: 600.7 UG/DAY
     Route: 037
  6. BACLOFEN INTRATHECAL [Suspect]
     Dosage: 100 UG, UNK
     Route: 037
  7. BACLOFEN INTRATHECAL [Suspect]
     Dosage: 700.4 UG/DAY
     Route: 037
  8. BACLOFEN [Suspect]
     Indication: MUSCLE SPASTICITY
     Dosage: UNK UKN, UNK
     Route: 048
  9. BACLOFEN [Suspect]
     Dosage: UNK UKN, (A HIGH DOSE UNSPECIFIED)
     Route: 048
  10. BACLOFEN [Suspect]
     Dosage: 15 MG, Q6H
     Route: 048
  11. IBUPROFEN [Suspect]
     Dosage: UNK UKN, UNK
  12. CLONAZEPAM SANDOZ [Suspect]
     Dosage: UNK UKN, UNK
  13. CETIRIZINE [Suspect]
     Dosage: UNK UKN, UNK
  14. PROPANOLOL [Suspect]
     Dosage: UNK UKN, UNK
  15. MIRALAX [Suspect]
     Dosage: UNK UKN, UNK

REACTIONS (14)
  - Clonus [Unknown]
  - Abnormal behaviour [Unknown]
  - Implant site warmth [Unknown]
  - Muscle spasticity [Recovering/Resolving]
  - Tachycardia [Unknown]
  - Hyperhidrosis [Unknown]
  - Convulsion [Unknown]
  - Hypotonia [Unknown]
  - Aggression [Unknown]
  - Hallucination [Unknown]
  - Tremor [Unknown]
  - Dyspnoea [Unknown]
  - Drug withdrawal syndrome [Unknown]
  - Accidental overdose [Unknown]
